FAERS Safety Report 7676860-8 (Version None)
Quarter: 2011Q3

REPORT INFORMATION
  Report Type: 
  Country: None (occurrence: None)
  Receive Date: 20110805
  Receipt Date: 20110725
  Transmission Date: 20111222
  Serious: Yes (Other)
  Sender: FDA-Public Use
  Company Number: FR-1184675

PATIENT
  Age: 65 Year
  Sex: Female
  Weight: 48 kg

DRUGS (6)
  1. ATORVASTATIN CALCIUM [Concomitant]
  2. AZOPT [Suspect]
     Indication: INTRAOCULAR PRESSURE INCREASED
     Dosage: (1 GTT BID OU OPHTHALMIC)
     Route: 047
     Dates: start: 20090301, end: 20110101
  3. NEXIUM [Concomitant]
  4. DIGOXIN [Concomitant]
  5. ASPEGIC 325 [Concomitant]
  6. PREVISCAN [Concomitant]

REACTIONS (2)
  - INTRAOCULAR PRESSURE INCREASED [None]
  - DIPLOPIA [None]
